FAERS Safety Report 7201550-5 (Version None)
Quarter: 2010Q4

REPORT INFORMATION
  Report Type: 
  Country: None (occurrence: None)
  Receive Date: 20101229
  Receipt Date: 20101217
  Transmission Date: 20110411
  Serious: Yes (Hospitalization)
  Sender: FDA-Public Use
  Company Number: FR-PFIZER INC-2010019379

PATIENT
  Age: 81 Year
  Sex: Female

DRUGS (8)
  1. ALDACTAZINE [Suspect]
     Dosage: UNK
     Route: 048
     Dates: start: 20091016, end: 20091119
  2. SIMVASTATIN [Suspect]
     Dosage: 20 MG, 1X/DAY
     Route: 048
     Dates: start: 20090701, end: 20091119
  3. EFFEXOR XR [Suspect]
     Dosage: 37.5 MG, 1X/DAY
     Route: 048
     Dates: start: 20090701, end: 20091119
  4. FLECAINIDE ACETATE [Suspect]
     Dosage: 50 MG, 2X/DAY
     Route: 048
     Dates: start: 20090701, end: 20091119
  5. NITROGLYCERIN [Suspect]
     Dosage: 1 DF, 1X/DAY
     Route: 062
     Dates: start: 20090701, end: 20091119
  6. LEXOMIL [Concomitant]
     Dosage: 1.5 MG, 1X/DAY
     Dates: start: 20090701
  7. SINTROM [Concomitant]
     Dosage: 3 MG, 1X/DAY
     Dates: start: 20090701
  8. NEXIUM [Concomitant]
     Dosage: 20 MG, 1X/DAY
     Dates: start: 20090701

REACTIONS (2)
  - HYPOCHLORAEMIA [None]
  - HYPONATRAEMIA [None]
